FAERS Safety Report 4816367-6 (Version None)
Quarter: 2005Q4

REPORT INFORMATION
  Report Type: 
  Country: None (occurrence: None)
  Receive Date: 20051028
  Receipt Date: 20051019
  Transmission Date: 20060501
  Serious: Yes (Death, Other)
  Sender: FDA-Public Use
  Company Number: 2005144579

PATIENT
  Age: 39 Year
  Sex: Male
  Weight: 100 kg

DRUGS (4)
  1. ATORVASTATIN CALCIUM [Suspect]
     Indication: CORONARY ARTERY DISEASE
     Dosage: 80 MG (1 D), ORAL
     Route: 048
     Dates: start: 20050518, end: 20050523
  2. DOBUTAMINE (DOBUTAMINE) [Concomitant]
  3. NORADRENALINE (NOREPINEPHRINE) [Concomitant]
  4. AMIODARONE HCL [Concomitant]

REACTIONS (4)
  - HYPERPYREXIA [None]
  - PNEUMONIA [None]
  - RENAL FAILURE [None]
  - RHABDOMYOLYSIS [None]
